FAERS Safety Report 7285134-9 (Version None)
Quarter: 2011Q1

REPORT INFORMATION
  Report Type: 
  Country: None (occurrence: None)
  Receive Date: 20110210
  Receipt Date: 20110201
  Transmission Date: 20110831
  Serious: Yes (Hospitalization, Other)
  Sender: FDA-Public Use
  Company Number: PHHY2011TR08330

PATIENT
  Sex: Female

DRUGS (1)
  1. EXJADE [Suspect]
     Indication: HAEMOSIDEROSIS
     Dosage: 30MG/KG
     Route: 048
     Dates: start: 20100920, end: 20110107

REACTIONS (3)
  - PNEUMONIA [None]
  - BONE MARROW DISORDER [None]
  - NEUTROPENIA [None]
